FAERS Safety Report 5613109-1 (Version None)
Quarter: 2008Q1

REPORT INFORMATION
  Report Type: 
  Country: None (occurrence: None)
  Receive Date: 20080129
  Receipt Date: 20080115
  Transmission Date: 20080703
  Serious: Yes (Other)
  Sender: FDA-Public Use
  Company Number: US021685

PATIENT
  Age: 65 Year
  Sex: Male
  Weight: 72.5755 kg

DRUGS (3)
  1. PROVIGIL [Suspect]
     Dosage: 100MG TO 200MG ONCE OR TWICE DAILY ORAL
     Route: 048
  2. LITHIUM CARBONATE [Concomitant]
  3. RISPERDAL [Concomitant]

REACTIONS (2)
  - SPEECH DISORDER [None]
  - TRANSIENT ISCHAEMIC ATTACK [None]
